FAERS Safety Report 11200247 (Version 1)
Quarter: 2015Q2

REPORT INFORMATION
  Report Type: Spontaneous
  Country: GB (occurrence: GB)
  Receive Date: 20150618
  Receipt Date: 20150618
  Transmission Date: 20150821
  Serious: Yes (Other)
  Sender: FDA-Public Use
  Company Number: GB-009507513-1411GBR000894

PATIENT
  Age: 17 Year
  Sex: Female

DRUGS (2)
  1. NEXPLANON [Suspect]
     Active Substance: ETONOGESTREL
     Indication: CONTRACEPTION
     Dosage: TOTAL DAILY DOSE: 60/70 IN WEEK 5-6/ FREQUENCY 3 YEARS
     Route: 059
     Dates: start: 20140624, end: 20140811
  2. CLOTRIMAZOLE. [Concomitant]
     Active Substance: CLOTRIMAZOLE
     Indication: INFECTION
     Dosage: 500 G, ROUTE: PESS
     Dates: start: 20140623, end: 20140624

REACTIONS (3)
  - Caesarean section [Recovered/Resolved]
  - Complication of delivery [Unknown]
  - Maternal exposure during pregnancy [Recovered/Resolved]

NARRATIVE: CASE EVENT DATE: 201502
